FAERS Safety Report 16753582 (Version 5)
Quarter: 2019Q4

REPORT INFORMATION
  Report Type: Spontaneous
  Country: ES (occurrence: ES)
  Receive Date: 20190829
  Receipt Date: 20191011
  Transmission Date: 20200122
  Serious: Yes (Life-Threatening, Hospitalization, Other)
  Sender: FDA-Public Use
  Company Number: ES-009507513-1504ESP010524

PATIENT
  Age: 57 Year
  Sex: Female

DRUGS (10)
  1. SINTROM [Concomitant]
     Active Substance: ACENOCOUMAROL
     Indication: PRODUCT USE IN UNAPPROVED INDICATION
     Dosage: UNK
  2. VASOTEC [Concomitant]
     Active Substance: ENALAPRIL MALEATE
     Indication: PRODUCT USE IN UNAPPROVED INDICATION
     Dosage: UNK
     Route: 065
  3. CUBICIN [Suspect]
     Active Substance: DAPTOMYCIN
     Indication: STAPHYLOCOCCAL INFECTION
     Dosage: UNK
  4. TORSEMIDE. [Concomitant]
     Active Substance: TORSEMIDE
     Indication: PRODUCT USE IN UNAPPROVED INDICATION
     Dosage: UNK
     Route: 065
  5. LANACORDIN [Concomitant]
     Active Substance: DIGOXIN
     Indication: ATRIAL FIBRILLATION
     Dosage: UNK
     Route: 065
  6. CUBICIN [Suspect]
     Active Substance: DAPTOMYCIN
     Indication: CARDIAC DISORDER
     Dosage: UNK
  7. CUBICIN [Suspect]
     Active Substance: DAPTOMYCIN
     Indication: ESCHERICHIA INFECTION
     Dosage: 350 MILLIGRAM, Q24H
     Route: 042
     Dates: start: 20071125, end: 20071212
  8. MEROPENEM. [Suspect]
     Active Substance: MEROPENEM
     Indication: CARDIAC DISORDER
     Dosage: UNK
     Route: 065
     Dates: start: 20071125, end: 20071212
  9. VANCOMYCIN [Concomitant]
     Active Substance: VANCOMYCIN
  10. LAMOTRIGINE. [Concomitant]
     Active Substance: LAMOTRIGINE
     Indication: PARTIAL SEIZURES
     Dosage: UNK
     Route: 065

REACTIONS (6)
  - Eosinophil count increased [Recovered/Resolved]
  - Cardiac arrest [Recovered/Resolved]
  - Tubulointerstitial nephritis [Recovered/Resolved]
  - Blood creatinine increased [Recovering/Resolving]
  - Prurigo [Recovered/Resolved]
  - Rash maculo-papular [Recovered/Resolved]

NARRATIVE: CASE EVENT DATE: 20071206
